FAERS Safety Report 9391682 (Version 8)
Quarter: 2014Q2

REPORT INFORMATION
  Report Type: Spontaneous
  Country: US (occurrence: US)
  Receive Date: 20130709
  Receipt Date: 20140527
  Transmission Date: 20141212
  Serious: Yes (Hospitalization)
  Sender: FDA-Public Use
  Company Number: US-GLAXOSMITHKLINE-A1031663A

PATIENT
  Age: 44 Year
  Sex: Female
  Weight: 92.3 kg

DRUGS (1)
  1. AVANDIA [Suspect]
     Indication: DIABETES MELLITUS
     Dosage: 2MG PER DAY
     Route: 048
     Dates: start: 200004, end: 200604

REACTIONS (5)
  - Pulmonary embolism [Unknown]
  - Pulmonary thrombosis [Unknown]
  - Right ventricular failure [Unknown]
  - Thrombosis [Unknown]
  - Cardiovascular disorder [Unknown]
